FAERS Safety Report 16105298 (Version 3)
Quarter: 2019Q2

REPORT INFORMATION
  Report Type: Other
  Country: CZ (occurrence: CZ)
  Receive Date: 20190322
  Receipt Date: 20190409
  Transmission Date: 20190711
  Serious: Yes (Disabling, Other)
  Sender: FDA-Public Use
  Company Number: CZ-APOTEX-2019AP009616

PATIENT
  Age: 82 Year
  Sex: Female

DRUGS (8)
  1. GABAPENTIN. [Suspect]
     Active Substance: GABAPENTIN
     Indication: RESTLESS LEGS SYNDROME
     Dosage: UNK
     Route: 048
  2. PREGABALIN. [Suspect]
     Active Substance: PREGABALIN
     Indication: RESTLESS LEGS SYNDROME
     Dosage: UNK
     Route: 048
  3. CARBOPLATIN. [Suspect]
     Active Substance: CARBOPLATIN
     Indication: LUNG NEOPLASM MALIGNANT
     Dosage: UNK
     Route: 042
  4. PARACETAMOL [Concomitant]
     Active Substance: ACETAMINOPHEN
     Indication: CANCER PAIN
     Dosage: UNK
     Route: 065
  5. FENTANYL. [Suspect]
     Active Substance: FENTANYL
     Indication: CANCER PAIN
     Dosage: 50 MICROGRAM, QH 50 MG, UNK EVERY ONE HOUR
     Route: 062
  6. FENTANYL. [Concomitant]
     Active Substance: FENTANYL
     Indication: PRODUCT USED FOR UNKNOWN INDICATION
     Dosage: UNK (GRADUAL DOSE TITRATION UP TO 50 ?/H)
     Route: 062
  7. PARACETAMOL, TRAMADOL [Suspect]
     Active Substance: ACETAMINOPHEN\TRAMADOL
     Indication: TUMOUR PAIN
     Dosage: UNK
     Route: 048
  8. TRANSTEC [Concomitant]
     Active Substance: BUPRENORPHINE
     Indication: PRODUCT USED FOR UNKNOWN INDICATION
     Dosage: UNK (DOSAGE TITRATION UP TO 70 ?/H)
     Route: 062

REACTIONS (9)
  - Anaemia [Unknown]
  - Product use in unapproved indication [Unknown]
  - Fatigue [Unknown]
  - Restless legs syndrome [Recovered/Resolved]
  - Gastrointestinal toxicity [Recovered/Resolved]
  - Sensory disturbance [Unknown]
  - Cancer pain [Recovered/Resolved]
  - Therapeutic product effect incomplete [Unknown]
  - Drug intolerance [Unknown]
